FAERS Safety Report 5764221-8 (Version None)
Quarter: 2008Q2

REPORT INFORMATION
  Report Type: 
  Country: None (occurrence: None)
  Receive Date: 20080604
  Receipt Date: 20080521
  Transmission Date: 20081010
  Serious: Yes (Hospitalization)
  Sender: FDA-Public Use
  Company Number: 2008AL005613

PATIENT
  Age: 83 Year
  Sex: Male

DRUGS (1)
  1. DIGOXIN [Suspect]
     Dosage: .125MG QOD PO
     Route: 048

REACTIONS (4)
  - CONFUSIONAL STATE [None]
  - DIARRHOEA [None]
  - DIZZINESS [None]
  - THERAPEUTIC AGENT TOXICITY [None]
